FAERS Safety Report 19132404 (Version 1)
Quarter: 2021Q2

REPORT INFORMATION
  Report Type: Spontaneous
  Country: US (occurrence: US)
  Receive Date: 20210413
  Receipt Date: 20210413
  Transmission Date: 20210717
  Serious: No
  Sender: FDA-Public Use
  Company Number: US-GILEAD-2021-0525138

PATIENT
  Sex: Male

DRUGS (3)
  1. TUMS [Concomitant]
     Active Substance: CALCIUM CARBONATE
     Dosage: UNK, ONCE
  2. VOSEVI [Suspect]
     Active Substance: SOFOSBUVIR\VELPATASVIR\VOXILAPREVIR
     Indication: CHRONIC HEPATITIS C
     Dosage: 1 DOSAGE FORM, QD
     Route: 048
  3. OMEPRAZOLE. [Concomitant]
     Active Substance: OMEPRAZOLE

REACTIONS (2)
  - Gastrooesophageal reflux disease [Unknown]
  - Cough [Not Recovered/Not Resolved]
